FAERS Safety Report 19839738 (Version 1)
Quarter: 2021Q3

REPORT INFORMATION
  Report Type: Spontaneous
  Country: US (occurrence: US)
  Receive Date: 20210916
  Receipt Date: 20210916
  Transmission Date: 20211014
  Serious: No
  Sender: FDA-Public Use
  Company Number: US-BSC-2021000027

PATIENT
  Sex: Female

DRUGS (1)
  1. VARITHENA [Suspect]
     Active Substance: POLIDOCANOL
     Dates: start: 202103, end: 202103

REACTIONS (9)
  - Swelling [Not Recovered/Not Resolved]
  - Venous pressure increased [Not Recovered/Not Resolved]
  - Vasodilatation [Not Recovered/Not Resolved]
  - Loss of personal independence in daily activities [Not Recovered/Not Resolved]
  - Varicose vein [Not Recovered/Not Resolved]
  - Pruritus [Not Recovered/Not Resolved]
  - Procedural pain [Not Recovered/Not Resolved]
  - Tenderness [Not Recovered/Not Resolved]
  - Spider vein [Not Recovered/Not Resolved]

NARRATIVE: CASE EVENT DATE: 202103
